FAERS Safety Report 4336141-7 (Version None)
Quarter: 2004Q2

REPORT INFORMATION
  Report Type: 
  Country: None (occurrence: None)
  Receive Date: 20040407
  Receipt Date: 20040326
  Transmission Date: 20050107
  Serious: Yes (Death, Other)
  Sender: FDA-Public Use
  Company Number: 2003-BP-08275PF

PATIENT
  Age: 70 Year
  Sex: Female

DRUGS (2)
  1. SPIRIVA [Suspect]
     Dosage: 18 MCG(18 MCG, DAILY), IH
     Route: 055
  2. OXYGEN (OXYGEN) [Concomitant]

REACTIONS (3)
  - CARDIAC ARREST [None]
  - CHRONIC OBSTRUCTIVE AIRWAYS DISEASE [None]
  - LARYNGEAL CANCER [None]
